FAERS Safety Report 6145782-6 (Version None)
Quarter: 2009Q2

REPORT INFORMATION
  Report Type: 
  Country: None (occurrence: None)
  Receive Date: 20090407
  Receipt Date: 20090401
  Transmission Date: 20091009
  Serious: Yes (Hospitalization)
  Sender: FDA-Public Use
  Company Number: US-ELI_LILLY_AND_COMPANY-US200904000432

PATIENT
  Sex: Female

DRUGS (22)
  1. BYETTA [Suspect]
     Indication: TYPE 2 DIABETES MELLITUS
     Dosage: 5 UG, 2/D
     Route: 058
     Dates: start: 20070101, end: 20070101
  2. BYETTA [Suspect]
     Dosage: 10 UG, 2/D
     Route: 058
     Dates: start: 20070101
  3. METFORMIN HCL [Concomitant]
     Indication: TYPE 2 DIABETES MELLITUS
  4. ADVAIR DISKUS 100/50 [Concomitant]
     Indication: ASTHMA
     Dosage: 1 D/F, 2/D
  5. ALLEGRA [Concomitant]
     Indication: ASTHMA
     Dosage: 180 MG, DAILY (1/D)
  6. CALCIUM WITH VITAMIN D [Concomitant]
     Dosage: 1200 MG, DAILY (1/D)
  7. CARDURA [Concomitant]
     Indication: HYPERTENSION
     Dosage: 4 MG, EACH EVENING
  8. ENABLEX                            /01760401/ [Concomitant]
     Indication: INCONTINENCE
     Dosage: 15 MG, EACH MORNING
  9. ENABLEX                            /01760401/ [Concomitant]
     Dosage: 7.5 MG, EACH EVENING
  10. HYOSCYAMINE [Concomitant]
     Indication: IRRITABLE BOWEL SYNDROME
     Dosage: 0.125 MG, 4/D
  11. LIPITOR [Concomitant]
     Indication: BLOOD CHOLESTEROL INCREASED
     Dosage: 40 MG, DAILY (1/D)
  12. LOPRESSOR [Concomitant]
     Indication: BLOOD PRESSURE
     Dosage: 25 MG, 2/D
  13. NUTROPIN AQ [Concomitant]
     Indication: BLOOD GROWTH HORMONE
     Dosage: 10 UG, DAILY (1/D)
  14. PAXIL [Concomitant]
     Dosage: 30 MG, DAILY (1/D)
  15. PRILOSEC [Concomitant]
     Dosage: 20 MG, DAILY (1/D)
  16. SALSALATE [Concomitant]
     Indication: ARTHRITIS
     Dosage: 750 MG, DAILY (1/D)
  17. SINGULAIR [Concomitant]
     Indication: MULTIPLE ALLERGIES
     Dosage: 10 UG, DAILY (1/D)
  18. SKELAXIN [Concomitant]
     Indication: MUSCLE RELAXANT THERAPY
     Dosage: UNK, DAILY (1/D)
  19. SPIRONOLACTONE [Concomitant]
     Indication: HYPERTENSION
     Dosage: 25 MG, DAILY (1/D)
  20. SYNTHROID [Concomitant]
     Indication: HYPOTHYROIDISM
     Dosage: 0.15 MG, DAILY (1/D)
  21. TOPAMAX [Concomitant]
     Dosage: 100 MG, 2/D
  22. VITAMIN D [Concomitant]
     Dosage: 6000 U, DAILY (1/D)

REACTIONS (2)
  - BLOOD PRESSURE INCREASED [None]
  - DIZZINESS [None]
